FAERS Safety Report 8887757 (Version 2)
Quarter: 2013Q1

REPORT INFORMATION
  Report Type: Spontaneous
  Country: AU (occurrence: AU)
  Receive Date: 20121106
  Receipt Date: 20130117
  Transmission Date: 20140127
  Serious: Yes (Life-Threatening, Hospitalization)
  Sender: FDA-Public Use
  Company Number: AU-009507513-1211AUS001185

PATIENT
  Age: 72 Year
  Sex: Male
  Weight: 65 kg

DRUGS (4)
  1. SAPHRIS [Suspect]
     Indication: BIPOLAR DISORDER
     Dosage: 5 MG, BID
     Route: 060
     Dates: start: 20120415
  2. SAPHRIS [Suspect]
     Indication: AFFECTIVE DISORDER
     Dosage: 10 MG, UNK
     Route: 060
     Dates: end: 201207
  3. VALPROATE SODIUM [Concomitant]
     Indication: BIPOLAR DISORDER
  4. LASIX (FUROSEMIDE) [Concomitant]
     Indication: CARDIAC DISORDER

REACTIONS (5)
  - Cardiomyopathy [Not Recovered/Not Resolved]
  - Atrial fibrillation [Unknown]
  - Ejection fraction decreased [Not Recovered/Not Resolved]
  - Neuroleptic malignant syndrome [Recovered/Resolved]
  - Parkinsonism [Recovered/Resolved]
